FAERS Safety Report 15806500 (Version 3)
Quarter: 2019Q2

REPORT INFORMATION
  Report Type: Spontaneous
  Country: US (occurrence: US)
  Receive Date: 20190110
  Receipt Date: 20190404
  Transmission Date: 20190711
  Serious: Yes (Other)
  Sender: FDA-Public Use
  Company Number: US-009507513-1901USA000358

PATIENT
  Age: 75 Year
  Sex: Female
  Weight: 72.56 kg

DRUGS (24)
  1. AMANTADINE. [Suspect]
     Active Substance: AMANTADINE HYDROCHLORIDE
     Dosage: 237 MG, 1X/DAY, AT BEDTIME / 2 CAPSULES DAILY
     Route: 048
     Dates: start: 20181118, end: 20181120
  2. CLONAZEPAM. [Concomitant]
     Active Substance: CLONAZEPAM
     Dosage: UNK
  3. ESTRADIOL. [Concomitant]
     Active Substance: ESTRADIOL
     Dosage: UNK
  4. AMANTADINE. [Concomitant]
     Active Substance: AMANTADINE HYDROCHLORIDE
     Dosage: UNK
     Dates: end: 201811
  5. CHOLECALCIFEROL [Concomitant]
     Active Substance: CHOLECALCIFEROL
     Dosage: UNK
  6. AMANTADINE. [Suspect]
     Active Substance: AMANTADINE HYDROCHLORIDE
     Dosage: 137 MG, 1X/DAY, AT BEDTIME / 1 CAPSULE
     Route: 048
     Dates: start: 20181121
  7. AMLODIPINE [Concomitant]
     Active Substance: AMLODIPINE BESYLATE
     Dosage: UNK
  8. LATANOPROST. [Concomitant]
     Active Substance: LATANOPROST
  9. NEUPRO [Concomitant]
     Active Substance: ROTIGOTINE
  10. ESOMEPRAZOLE. [Concomitant]
     Active Substance: ESOMEPRAZOLE MAGNESIUM
     Dosage: UNK
     Dates: end: 201811
  11. DORZOLAMIDE HYDROCHLORIDE. [Concomitant]
     Active Substance: DORZOLAMIDE HYDROCHLORIDE
     Dosage: UNK
  12. UBIDECARENONE [Concomitant]
     Active Substance: UBIDECARENONE
     Dosage: UNK
  13. AMANTADINE. [Suspect]
     Active Substance: AMANTADINE HYDROCHLORIDE
     Dosage: 274 MG NIGHTLY
  14. PANTOPRAZOLE [Concomitant]
     Active Substance: PANTOPRAZOLE
  15. VITAMINS (UNSPECIFIED) [Concomitant]
     Active Substance: VITAMINS
     Dosage: UNK
  16. LEVOTHYROXINE SODIUM. [Concomitant]
     Active Substance: LEVOTHYROXINE SODIUM
  17. NITROFUR MAC [Concomitant]
     Active Substance: NITROFURANTOIN
     Dosage: UNK
  18. SINEMET [Suspect]
     Active Substance: CARBIDOPA\LEVODOPA
     Indication: PARKINSON^S DISEASE
     Dosage: 8 TABLETS DAILY
     Route: 048
     Dates: end: 201811
  19. AMANTADINE. [Suspect]
     Active Substance: AMANTADINE HYDROCHLORIDE
     Indication: DYSKINESIA
     Dosage: 137 MG, 1X/DAY, AT BEDTIME
     Route: 048
     Dates: start: 20181106, end: 20181117
  20. METOPROLOL. [Concomitant]
     Active Substance: METOPROLOL
  21. ASPIRIN. [Concomitant]
     Active Substance: ASPIRIN
     Dosage: UNK
  22. SINEMET [Suspect]
     Active Substance: CARBIDOPA\LEVODOPA
     Dosage: TABLET, 4 TO 5 TIMES PER DAY (AT 8 AM, 12 PM, 4 PM, AND 8 PM; THE PATIENT COULD TAKE AN ADDITIONAL T
     Route: 048
     Dates: start: 201811
  23. MIRAPEX [Concomitant]
     Active Substance: PRAMIPEXOLE DIHYDROCHLORIDE
     Dosage: UNK
  24. KETOCONAZOLE. [Concomitant]
     Active Substance: KETOCONAZOLE
     Dosage: UNK

REACTIONS (17)
  - Dry mouth [Unknown]
  - Seizure [Unknown]
  - Hypertension [Unknown]
  - Dyskinesia [Recovered/Resolved]
  - Dysphagia [Recovered/Resolved]
  - Anxiety [Unknown]
  - Intraocular pressure increased [Not Recovered/Not Resolved]
  - Dry eye [Unknown]
  - Nightmare [Unknown]
  - Headache [Unknown]
  - Freezing phenomenon [Recovered/Resolved]
  - Tremor [Recovered/Resolved]
  - Mixed incontinence [Unknown]
  - Nervousness [Unknown]
  - Aphasia [Recovered/Resolved]
  - Vertigo [Unknown]
  - Malaise [Unknown]

NARRATIVE: CASE EVENT DATE: 2018
